FAERS Safety Report 5292268-7 (Version None)
Quarter: 2007Q2

REPORT INFORMATION
  Report Type: 
  Country: None (occurrence: None)
  Receive Date: 20070410
  Receipt Date: 20070202
  Transmission Date: 20071010
  Serious: Yes (Other)
  Sender: FDA-Public Use
  Company Number: AU-SANOFI-SYNTHELABO-A01200701236

PATIENT
  Sex: Male

DRUGS (2)
  1. STILNOX [Suspect]
     Indication: DRUG USE FOR UNKNOWN INDICATION
     Dosage: 2 DF
     Route: 065
  2. STILNOX [Suspect]
     Dosage: 1 DF
     Route: 048

REACTIONS (2)
  - ABNORMAL BEHAVIOUR [None]
  - DELIRIUM [None]
